FAERS Safety Report 23758789 (Version 1)
Quarter: 2024Q2

REPORT INFORMATION
  Report Type: Spontaneous
  Country: US (occurrence: None)
  Receive Date: 20240418
  Receipt Date: 20240418
  Transmission Date: 20240716
  Serious: No
  Sender: FDA-Public Use
  Company Number: US-ROCHE-3503004

PATIENT
  Age: 33 Year
  Sex: Male

DRUGS (12)
  1. AVASTIN [Suspect]
     Active Substance: BEVACIZUMAB
     Indication: Retinal vein occlusion
     Route: 050
     Dates: start: 20240126
  2. AVASTIN [Suspect]
     Active Substance: BEVACIZUMAB
     Indication: Optic neuritis
  3. AVASTIN [Suspect]
     Active Substance: BEVACIZUMAB
     Indication: Macular oedema
  4. ZYRTEC [Concomitant]
     Active Substance: CETIRIZINE HYDROCHLORIDE
  5. PREVACID [Concomitant]
     Active Substance: LANSOPRAZOLE
  6. PEPCID AC [Concomitant]
     Active Substance: FAMOTIDINE
  7. SINGULAIR [Concomitant]
     Active Substance: MONTELUKAST SODIUM
  8. ALBUTEROL [Concomitant]
     Active Substance: ALBUTEROL
  9. FLONASE [Concomitant]
     Active Substance: FLUTICASONE PROPIONATE
  10. PERCOCET [Concomitant]
     Active Substance: ACETAMINOPHEN\OXYCODONE HYDROCHLORIDE
  11. AMOXICILLIN [Concomitant]
     Active Substance: AMOXICILLIN
  12. MOTRIN [Concomitant]
     Active Substance: IBUPROFEN

REACTIONS (6)
  - Off label use [Unknown]
  - Vitreous floaters [Not Recovered/Not Resolved]
  - Vision blurred [Not Recovered/Not Resolved]
  - Ocular hyperaemia [Not Recovered/Not Resolved]
  - Pyrexia [Unknown]
  - Optic neuritis [Unknown]

NARRATIVE: CASE EVENT DATE: 20240126
